FAERS Safety Report 10501697 (Version 1)
Quarter: 2014Q3

REPORT INFORMATION
  Report Type: Spontaneous
  Country: US (occurrence: None)
  Receive Date: 20140815
  Receipt Date: 20140815
  Transmission Date: 20150326
  Serious: Yes (Life-Threatening, Hospitalization, Other)
  Sender: FDA-Public Use
  Company Number: ADR-2013-01126

PATIENT
  Age: 57 Year
  Sex: Female

DRUGS (3)
  1. BACLOFEN INTRATHECAL [Suspect]
     Active Substance: BACLOFEN
     Indication: PAIN
  2. MORPHINE [Suspect]
     Active Substance: MORPHINE
  3. ORAL BACLOFEN [Suspect]
     Active Substance: BACLOFEN

REACTIONS (4)
  - Hypotonia [None]
  - Somnolence [None]
  - Sedation [None]
  - Confusional state [None]

NARRATIVE: CASE EVENT DATE: 20130627
